FAERS Safety Report 13209814 (Version 1)
Quarter: 2017Q1

REPORT INFORMATION
  Report Type: Spontaneous
  Country: US (occurrence: US)
  Receive Date: 20170209
  Receipt Date: 20170209
  Transmission Date: 20170428
  Serious: Yes (Other)
  Sender: FDA-Public Use
  Company Number: US-SAGENTPRD-2017-US-000021

PATIENT
  Age: 9 Week
  Sex: 0

DRUGS (3)
  1. CAFFEINE CITRATE ORAL SOLUTION [Suspect]
     Active Substance: CAFFEINE CITRATE
     Dosage: 17 MG DAILY
  2. PHENYLEPHRINE EYE DROPS [Concomitant]
  3. CYCLOPENTOLATE EYE DROPS [Concomitant]

REACTIONS (1)
  - Atrial tachycardia [Unknown]
